APPROVED DRUG PRODUCT: TOLCAPONE
Active Ingredient: TOLCAPONE
Strength: 100MG
Dosage Form/Route: TABLET;ORAL
Application: A210095 | Product #001
Applicant: DR REDDYS LABORATORIES SA
Approved: Aug 1, 2019 | RLD: No | RS: No | Type: DISCN